FAERS Safety Report 4359658-8 (Version None)
Quarter: 2004Q2

REPORT INFORMATION
  Report Type: 
  Country: None (occurrence: None)
  Receive Date: 20040512
  Receipt Date: 20040504
  Transmission Date: 20050107
  Serious: Yes (Other)
  Sender: FDA-Public Use
  Company Number: US-SHR-04-024909

PATIENT
  Age: 41 Year
  Sex: Female

DRUGS (1)
  1. BETASERON (INTERFERON BETA-1B)INJECTION, 250UG [Suspect]
     Indication: MULTIPLE SCLEROSIS
     Dosage: 8 MIU, EVERY 2D, SUBCUTANEOUS
     Route: 058
     Dates: start: 19991101

REACTIONS (2)
  - DYSPNOEA [None]
  - THROAT TIGHTNESS [None]
